FAERS Safety Report 10790966 (Version 1)
Quarter: 2015Q1

REPORT INFORMATION
  Report Type: Spontaneous
  Country: US (occurrence: US)
  Receive Date: 20150212
  Receipt Date: 20150212
  Transmission Date: 20150721
  Serious: Yes (Hospitalization)
  Sender: FDA-Public Use
  Company Number: US-B.I. PHARMACEUTICALS,INC./RIDGEFIELD-2015-BI-06600BP

PATIENT
  Age: 62 Year
  Sex: Female
  Weight: 61.69 kg

DRUGS (2)
  1. METOPROLOL [Concomitant]
     Active Substance: METOPROLOL
     Indication: HEART RATE INCREASED
     Dosage: 25 MG
     Route: 048
     Dates: start: 201408
  2. SPIRIVA [Suspect]
     Active Substance: TIOTROPIUM BROMIDE MONOHYDRATE
     Indication: CHRONIC OBSTRUCTIVE PULMONARY DISEASE
     Dosage: 18 MCG
     Route: 055
     Dates: start: 201408

REACTIONS (3)
  - Colostomy [Recovered/Resolved]
  - Urticaria [Not Recovered/Not Resolved]
  - Rash [Not Recovered/Not Resolved]

NARRATIVE: CASE EVENT DATE: 201408
